FAERS Safety Report 11458891 (Version 1)
Quarter: 2015Q3

REPORT INFORMATION
  Report Type: Spontaneous
  Country: NL (occurrence: NL)
  Receive Date: 20150904
  Receipt Date: 20150904
  Transmission Date: 20151125
  Serious: Yes (Death, Other)
  Sender: FDA-Public Use
  Company Number: NL-PFIZER INC-2015291320

PATIENT
  Age: 68 Year
  Sex: Female
  Weight: 58 kg

DRUGS (16)
  1. ARGANOVA [Suspect]
     Active Substance: ARGATROBAN
     Indication: HEPARIN-INDUCED THROMBOCYTOPENIA
     Dosage: UNK
     Route: 042
     Dates: start: 20150805
  2. PARACETAMOL [Concomitant]
     Active Substance: ACETAMINOPHEN
     Dosage: 1000 MG, 4X/DAY
     Route: 048
  3. BUMETANIDE. [Concomitant]
     Active Substance: BUMETANIDE
     Dosage: 1 MG, 2X/DAY
     Route: 048
  4. LACTULOSE STROOP [Concomitant]
     Dosage: 10 ML, ALTERNATE DAY
  5. ARGANOVA [Suspect]
     Active Substance: ARGATROBAN
     Indication: ANTICOAGULANT THERAPY
  6. FENYLEFRINE [Concomitant]
     Dosage: 50 ?G, UNK
  7. ESKETAMINE [Concomitant]
     Active Substance: ESKETAMINE
     Dosage: 6 MG/UUR
     Route: 042
  8. EPLERENONE. [Concomitant]
     Active Substance: EPLERENONE
     Dosage: 37.5 MG, 1X/DAY
     Route: 048
  9. MILRINONE [Concomitant]
     Active Substance: MILRINONE
     Dosage: 0.5 UG/KG/MIN
  10. DIGOXINE [Concomitant]
     Active Substance: DIGOXIN
     Dosage: 6.25 MG, 1X/DAY
     Route: 048
  11. TRANEXAMINEZUUR [Concomitant]
     Dosage: 6.9 MG/KG/UUR
  12. CETOMACROGOL 1000/PARAFFIN, LIQUID/PETROLATUM/SALICYLIC ACID [Concomitant]
     Dosage: 1 DF, 3X/DAY
     Route: 061
  13. EFEDRINE HCL [Concomitant]
     Dosage: 5 MG, UNK
  14. SUFENTANIL CITRATE. [Concomitant]
     Active Substance: SUFENTANIL CITRATE
     Dosage: 0.4 MG/KG/MIN
  15. DOBUTAMINE [Concomitant]
     Active Substance: DOBUTAMINE\DOBUTAMINE HYDROCHLORIDE
     Dosage: 0.4 MG/KG/MIN
  16. NOREPINEPHRINE [Concomitant]
     Active Substance: NOREPINEPHRINE\NOREPINEPHRINE BITARTRATE
     Dosage: UNK

REACTIONS (2)
  - Drug ineffective [Unknown]
  - Thrombosis in device [Fatal]

NARRATIVE: CASE EVENT DATE: 20150812
